FAERS Safety Report 17584758 (Version 1)
Quarter: 2020Q1

REPORT INFORMATION
  Report Type: Spontaneous
  Country: CN (occurrence: CN)
  Receive Date: 20200326
  Receipt Date: 20200326
  Transmission Date: 20200409
  Serious: Yes (Hospitalization, Other)
  Sender: FDA-Public Use
  Company Number: CN-PFIZER INC-2020126384

PATIENT
  Age: 37 Year
  Sex: Male
  Weight: 70 kg

DRUGS (4)
  1. ZYVOX [Suspect]
     Active Substance: LINEZOLID
     Indication: PNEUMONIA
     Dosage: 600 MG, 2X/DAY
     Route: 041
     Dates: start: 20200301, end: 20200314
  2. DIFLUCAN [Suspect]
     Active Substance: FLUCONAZOLE
     Indication: PNEUMONIA
     Dosage: 200 MG, 1X/DAY
     Route: 041
     Dates: start: 20200226, end: 20200310
  3. TAZOCIN [Suspect]
     Active Substance: PIPERACILLIN SODIUM\TAZOBACTAM SODIUM
     Indication: PNEUMONIA
     Dosage: 4.5 G, 3X/DAY
     Route: 041
     Dates: start: 20200304, end: 20200316
  4. SODIUM CHLORIDE. [Concomitant]
     Active Substance: SODIUM CHLORIDE
     Indication: VEHICLE SOLUTION USE
     Dosage: 250 ML, 3X/DAY
     Route: 041
     Dates: start: 20200304, end: 20200316

REACTIONS (2)
  - Pseudomembranous colitis [Unknown]
  - Diarrhoea [Unknown]

NARRATIVE: CASE EVENT DATE: 20200316
